FAERS Safety Report 24200929 (Version 2)
Quarter: 2024Q3

REPORT INFORMATION
  Report Type: Spontaneous
  Country: FR (occurrence: FR)
  Receive Date: 20240812
  Receipt Date: 20240814
  Transmission Date: 20241017
  Serious: No
  Sender: PFIZER
  Company Number: FR-PFIZER INC-PV202300186836

PATIENT
  Age: 16 Year
  Sex: Female
  Weight: 49.5 kg

DRUGS (1)
  1. INOTUZUMAB OZOGAMICIN [Suspect]
     Active Substance: INOTUZUMAB OZOGAMICIN
     Indication: B-cell type acute leukaemia
     Dosage: UNK

REACTIONS (3)
  - Neoplasm recurrence [Recovered/Resolved]
  - Gamma-glutamyltransferase increased [Unknown]
  - Off label use [Unknown]

NARRATIVE: CASE EVENT DATE: 20240205
